FAERS Safety Report 6065365-6 (Version None)
Quarter: 2009Q1

REPORT INFORMATION
  Report Type: 
  Country: None (occurrence: None)
  Receive Date: 20090204
  Receipt Date: 20090128
  Transmission Date: 20090719
  Serious: Yes (Hospitalization)
  Sender: FDA-Public Use
  Company Number: US-GENENTECH-276337

PATIENT
  Age: 57 Year
  Sex: Female

DRUGS (6)
  1. RITUXAN [Suspect]
     Indication: B-CELL LYMPHOMA
     Dosage: 375 MG/KG, Q3W
     Route: 042
     Dates: start: 20080501, end: 20080901
  2. CYCLOPHOSPHAMIDE [Suspect]
     Indication: NON-HODGKIN'S LYMPHOMA
     Dosage: UNK
  3. DOXORUBICIN HCL [Suspect]
     Indication: NON-HODGKIN'S LYMPHOMA
  4. VINCRISTINE [Suspect]
     Indication: NON-HODGKIN'S LYMPHOMA
  5. PREDNISONE [Suspect]
     Indication: NON-HODGKIN'S LYMPHOMA
  6. ZOMIG [Concomitant]
     Indication: DRUG USE FOR UNKNOWN INDICATION

REACTIONS (1)
  - FEBRILE NEUTROPENIA [None]
